FAERS Safety Report 7949207-7 (Version None)
Quarter: 2011Q4

REPORT INFORMATION
  Report Type: 
  Country: None (occurrence: None)
  Receive Date: 20111125
  Receipt Date: 20111103
  Transmission Date: 20120403
  Serious: Yes (Hospitalization, Other)
  Sender: FDA-Public Use
  Company Number: CIP11001738

PATIENT
  Age: 46 Year
  Sex: Female
  Weight: 111.4 kg

DRUGS (46)
  1. LEXAPRO [Concomitant]
  2. TRIMETHOBENZAMIDE (TRIMETHOBENZAMIDE) [Concomitant]
  3. TIZANIDINE HCL [Concomitant]
  4. ASPIRIN [Concomitant]
  5. HYDROXYCHLOROQUINE (HYDROXYCHLOROQUINE SULFATE) [Concomitant]
  6. PREDNISONE TAB [Concomitant]
  7. MAXALT /01406501/ (RIZATRIPTAN) [Concomitant]
  8. RELPAX [Concomitant]
  9. PREVACID [Concomitant]
  10. BUPROPION HCL [Concomitant]
  11. METOCLOPRAMIDE HCL [Concomitant]
  12. MEDROXYPROGEST (MEDROXYPROGESTERONE ACETATE) [Concomitant]
  13. RECLAST [Suspect]
     Indication: OSTEOPOROSIS
     Dosage: ONCE ONLY, IV NOS
     Route: 042
     Dates: start: 20100201, end: 20100201
  14. TOPROL-XL [Concomitant]
  15. AMBIEN [Concomitant]
  16. PROMETRIUM /00110701/ (PROGESTERONE) [Concomitant]
  17. LEVAQUIN [Concomitant]
  18. ZITHROMAX [Concomitant]
  19. PRAVACHOL [Concomitant]
  20. PROCHLORPERAZINE MALEATE [Concomitant]
  21. FOLIC ACID [Concomitant]
  22. TRIAMTERENE AND HYDROCHLOROTHIAZIDE [Concomitant]
  23. FLUCONAZOLE [Concomitant]
  24. MOBIC [Concomitant]
  25. ADVAIR HFA [Concomitant]
  26. DROCON-CS (BROMPHENIRAMINE MALEATE, HYDROCODONE BITARTRATE, PSEUDOEPHE [Concomitant]
  27. ACTONEL [Suspect]
     Dosage: 35 MG, 1 /WEEK, ORAL
     Route: 048
     Dates: start: 20040831, end: 20060921
  28. MECLIZINE /00072801/ (MECLOZINE) [Concomitant]
  29. LIDOCAINE [Concomitant]
  30. HYDROCODONE W/APAP (HYDROCODONE, PARACETAMOL) [Concomitant]
  31. NEXIUM [Concomitant]
  32. ALPRAZOLAM [Concomitant]
  33. TRIAMCINOLONE [Concomitant]
  34. TOPAMAX [Concomitant]
  35. CIPROFLOXACIN [Concomitant]
  36. PROMETHAZINE [Concomitant]
  37. BONIVA [Suspect]
  38. AMOXICILLIN AND CLAVULANATE POTASSIUM (AMOXICILLIN TRIHYDRATE, CLAVULA [Concomitant]
  39. METHOTREXATE [Concomitant]
  40. FORTEO [Suspect]
     Dosage: INJECTION NOS
     Dates: start: 20080410
  41. AZATHIOPRINE [Concomitant]
  42. GABAPENTIN [Concomitant]
  43. FORTICAL /00108001/ (CALCIUM CARBONATE) [Concomitant]
  44. FLEXERIL /00428402/ (CYCLOBENZAPRINE HYDROCHLORIDE) [Concomitant]
  45. PLAQUENIL [Concomitant]
  46. DEHYDROPIANDROSTERONE (PRASTERONE) [Concomitant]

REACTIONS (11)
  - PAIN IN EXTREMITY [None]
  - GASTROOESOPHAGEAL REFLUX DISEASE [None]
  - GASTROINTESTINAL TRACT IRRITATION [None]
  - STRESS FRACTURE [None]
  - ARTHRALGIA [None]
  - FALL [None]
  - BONE LOSS [None]
  - COMMINUTED FRACTURE [None]
  - IATROGENIC INJURY [None]
  - BURSITIS [None]
  - FEMUR FRACTURE [None]
